FAERS Safety Report 12352188 (Version 1)
Quarter: 2016Q2

REPORT INFORMATION
  Report Type: Spontaneous
  Country: AU (occurrence: AU)
  Receive Date: 20160510
  Receipt Date: 20160510
  Transmission Date: 20160815
  Serious: Yes (Disabling)
  Sender: FDA-Public Use
  Company Number: AU-OTSUKA-2016_007889

PATIENT
  Age: 30 Year
  Sex: Female
  Weight: 66 kg

DRUGS (3)
  1. ZYPREXA [Suspect]
     Active Substance: OLANZAPINE
     Indication: PRODUCT USED FOR UNKNOWN INDICATION
     Dosage: 5 MG, QD
     Route: 065
     Dates: start: 20150120, end: 20151209
  2. ABILIFY MAINTENA [Suspect]
     Active Substance: ARIPIPRAZOLE
     Indication: PRODUCT USED FOR UNKNOWN INDICATION
     Dosage: UNK, QM
     Route: 065
     Dates: start: 20150120, end: 20151120
  3. MIRTAZAPINE. [Suspect]
     Active Substance: MIRTAZAPINE
     Indication: PRODUCT USED FOR UNKNOWN INDICATION
     Dosage: 30 MG, QD
     Route: 065
     Dates: start: 20150120, end: 20151209

REACTIONS (11)
  - Eye irritation [Recovering/Resolving]
  - Menorrhagia [Recovering/Resolving]
  - Fatigue [Recovering/Resolving]
  - Skin burning sensation [Recovering/Resolving]
  - Coordination abnormal [Recovering/Resolving]
  - Hallucination [Recovering/Resolving]
  - Weight increased [Recovering/Resolving]
  - Depressed mood [Recovering/Resolving]
  - Anxiety [Recovering/Resolving]
  - Muscle spasticity [Recovering/Resolving]
  - Muscle twitching [Recovering/Resolving]

NARRATIVE: CASE EVENT DATE: 20150320
